FAERS Safety Report 8262291-9 (Version None)
Quarter: 2012Q2

REPORT INFORMATION
  Report Type: 
  Country: None (occurrence: None)
  Receive Date: 20120405
  Receipt Date: 20120329
  Transmission Date: 20120825
  Serious: Yes (Hospitalization)
  Sender: FDA-Public Use
  Company Number: FR-PURDUE-GBR-2012-0010180

PATIENT
  Sex: Female

DRUGS (4)
  1. GEMCITABINE [Concomitant]
     Indication: CHEMOTHERAPY
  2. MORPHINE SULFATE [Suspect]
     Indication: PRODUCT USED FOR UNKNOWN INDICATION
     Dosage: 30 MG, BID
     Route: 048
  3. OXYCODONE HYDROCHLORIDE [Suspect]
     Indication: PRODUCT USED FOR UNKNOWN INDICATION
     Dosage: 5 MG, Q4H
     Route: 048
  4. PLATINE SALTS [Concomitant]

REACTIONS (3)
  - OVERDOSE [None]
  - PNEUMONIA ASPIRATION [None]
  - FALL [None]
